FAERS Safety Report 6931307-1 (Version None)
Quarter: 2010Q3

REPORT INFORMATION
  Report Type: 
  Country: None (occurrence: None)
  Receive Date: 20100816
  Receipt Date: 20100730
  Transmission Date: 20110219
  Serious: Yes (Hospitalization)
  Sender: FDA-Public Use
  Company Number: 1000015521

PATIENT
  Age: 87 Year
  Sex: Male

DRUGS (11)
  1. ESCITALOPRAM [Suspect]
     Dosage: 10 MG (10 MG, 1 IN 1 D),ORAL
     Route: 048
     Dates: end: 20100510
  2. CYMBALTA [Suspect]
     Indication: DEPRESSION
     Dosage: 60 MG  (60 MG, 1 IN 1 D), ORAL
     Route: 048
     Dates: start: 20100421, end: 20100510
  3. ATARAX [Suspect]
     Dosage: 50 MG (25 MG, 2 IN 1 D), ORAL
     Route: 048
     Dates: end: 20100510
  4. ANAFRANIL [Suspect]
     Dosage: 25 MG (25 MG, 1 IN 1 D) , ORAL
     Route: 048
     Dates: end: 20100510
  5. LORAZEPAM [Suspect]
     Dosage: 1.25MG (1.25MG , 1 IN 1 D), ORAL
     Route: 048
     Dates: end: 20100510
  6. KARDEGIC [Suspect]
     Dosage: 75 MG (75 MG,  1 IN 1 D), ORAL
     Route: 048
     Dates: end: 20100510
  7. DIAMICRON [Suspect]
     Dosage: 30 MG (30 MG, 1 IN 1 D),ORAL
     Dates: end: 20100510
  8. OGASTORO [Suspect]
     Dosage: 15 MG (15 MG,  1 IN 1 D), ORAL
     Dates: end: 20100510
  9. FUROSEMIDE [Suspect]
     Dosage: 40 MG (40 MG, 1 IN 1 D), ORAL
     Route: 048
     Dates: end: 20100510
  10. DIFFU K [Suspect]
     Dosage: 600 MG (600 MG, 1 IN 1 D), ORAL
     Route: 048
     Dates: end: 20100510
  11. TAMSULOSIN HCL [Suspect]
     Dosage: 0.4 MG (0.4 MG,  1 IN 1 D), ORAL
     Route: 048
     Dates: end: 20100510

REACTIONS (6)
  - DISTURBANCE IN ATTENTION [None]
  - FALL [None]
  - HEPATITIS FULMINANT [None]
  - INCOHERENT [None]
  - PLEURAL EFFUSION [None]
  - SOMNOLENCE [None]
